FAERS Safety Report 9844669 (Version 2)
Quarter: 2014Q1

REPORT INFORMATION
  Report Type: Spontaneous
  Country: JP (occurrence: None)
  Receive Date: 20140122
  Receipt Date: 20140123
  Transmission Date: 20141002
  Serious: Yes (Hospitalization)
  Sender: FDA-Public Use
  Company Number: B0959409A

PATIENT
  Sex: 0

DRUGS (2)
  1. PAROXETINE HYDROCHLORIDE TABLET-CONTROLLED RELEAS E [Suspect]
     Indication: DEPRESSION
     Dosage: 3 IU AXA
     Route: 048
  2. PAROXETINE HYDROCHLORIDE [Suspect]
     Indication: DEPRESSION
     Route: 048

REACTIONS (1)
  - Tremor [None]
